FAERS Safety Report 5013893-4 (Version None)
Quarter: 2006Q2

REPORT INFORMATION
  Report Type: 
  Country: None (occurrence: None)
  Receive Date: 20060526
  Receipt Date: 20060526
  Transmission Date: 20061013
  Serious: Yes (Hospitalization, Other)
  Sender: FDA-Public Use
  Company Number: None

PATIENT
  Sex: Female
  Weight: 61.2356 kg

DRUGS (2)
  1. BUPROPION HCL [Suspect]
     Indication: DEPRESSION
     Dosage: 150 MG  1 DAILY
     Dates: start: 20031015, end: 20060324
  2. CLONAZEPAM [Suspect]
     Indication: INSOMNIA
     Dosage: 1MG   1 AT BEDTIME
     Dates: start: 20031015, end: 20060324

REACTIONS (9)
  - ANXIETY [None]
  - DYSKINESIA [None]
  - HALLUCINATION [None]
  - INSOMNIA [None]
  - MUSCLE SPASMS [None]
  - NAUSEA [None]
  - PARAESTHESIA [None]
  - PHOTOPSIA [None]
  - TINNITUS [None]
